FAERS Safety Report 20748977 (Version 1)
Quarter: 2022Q2

REPORT INFORMATION
  Report Type: Report from Study
  Country: CA (occurrence: CA)
  Receive Date: 20220426
  Receipt Date: 20220426
  Transmission Date: 20220721
  Serious: Yes (Death, Other)
  Sender: FDA-Public Use
  Company Number: CA-EXELIXIS-CABO-22050448

PATIENT
  Sex: Female

DRUGS (2)
  1. NIVOLUMAB [Suspect]
     Active Substance: NIVOLUMAB
     Indication: Endometrial cancer metastatic
     Dosage: 240 MG (DAYS 1 AND 15) IN 28-DAY CYCLE
     Route: 042
  2. CABOMETYX [Suspect]
     Active Substance: CABOZANTINIB S-MALATE
     Indication: Endometrial cancer metastatic
     Dosage: 40 MG, QD
     Route: 048

REACTIONS (2)
  - Sepsis [Fatal]
  - Large intestine perforation [Fatal]
